FAERS Safety Report 22228924 (Version 1)
Quarter: 2023Q2

REPORT INFORMATION
  Report Type: Spontaneous
  Country: GB (occurrence: GB)
  Receive Date: 20230419
  Receipt Date: 20230419
  Transmission Date: 20230722
  Serious: Yes (Other)
  Sender: FDA-Public Use
  Company Number: GB-MHRA-MED-202304111930304690-TSMNK

PATIENT
  Age: 26 Year
  Sex: Male
  Weight: 114 kg

DRUGS (1)
  1. TERBINAFINE [Suspect]
     Active Substance: TERBINAFINE
     Indication: Onychomycosis

REACTIONS (2)
  - Anxiety [Recovered/Resolved]
  - Abdominal pain [Recovered/Resolved]
